FAERS Safety Report 20209677 (Version 1)
Quarter: 2021Q4

REPORT INFORMATION
  Report Type: Spontaneous
  Country: IN (occurrence: IN)
  Receive Date: 20211221
  Receipt Date: 20211221
  Transmission Date: 20220303
  Serious: Yes (Other)
  Sender: FDA-Public Use
  Company Number: IN-CIPLA LTD.-2021IN08157

PATIENT

DRUGS (3)
  1. GEMCITABINE [Suspect]
     Active Substance: GEMCITABINE
     Indication: Adenocarcinoma gastric
     Dosage: 800 MILLIGRAM, D1 AND D8 OF 21 DAY
     Route: 042
     Dates: start: 201810
  2. PEMETREXED [Suspect]
     Active Substance: PEMETREXED
     Indication: Adenocarcinoma gastric
     Dosage: 400 MILLIGRAM, D1 AND D8 OF 21 DAY
     Route: 042
     Dates: start: 201810
  3. PAZOPANIB [Suspect]
     Active Substance: PAZOPANIB
     Indication: Adenocarcinoma gastric
     Dosage: 400 MILLIGRAM, QD
     Route: 048
     Dates: start: 201810

REACTIONS (4)
  - Pneumothorax [Recovered/Resolved]
  - Sepsis [Recovered/Resolved]
  - Thrombocytopenia [Recovered/Resolved]
  - Fatigue [Recovered/Resolved]
